FAERS Safety Report 18002666 (Version 2)
Quarter: 2021Q3

REPORT INFORMATION
  Report Type: Spontaneous
  Country: US (occurrence: US)
  Receive Date: 20200709
  Receipt Date: 20210709
  Transmission Date: 20211014
  Serious: Yes (Other)
  Sender: FDA-Public Use
  Company Number: US-ASTELLAS-2019US029299

PATIENT
  Age: 64 Year
  Sex: Female

DRUGS (3)
  1. PHENAZOPYRIDINE. [Concomitant]
     Active Substance: PHENAZOPYRIDINE
     Indication: PRODUCT USED FOR UNKNOWN INDICATION
     Dosage: UNK, THRICE DAILY (AS NEEDED)
     Route: 065
  2. HYDROCODONE [Concomitant]
     Active Substance: HYDROCODONE
     Indication: PRODUCT USED FOR UNKNOWN INDICATION
     Dosage: UNK UNK, UNKNOWN FREQ.
     Route: 065
  3. MYRBETRIQ [Suspect]
     Active Substance: MIRABEGRON
     Indication: PRODUCT USED FOR UNKNOWN INDICATION
     Route: 065
     Dates: start: 20190715

REACTIONS (7)
  - Nephrolithiasis [Unknown]
  - Groin pain [Unknown]
  - Chromaturia [Unknown]
  - Muscle spasms [Unknown]
  - Off label use [Unknown]
  - Pain [Unknown]
  - Dysuria [Unknown]
